FAERS Safety Report 8453354 (Version 3)
Quarter: 2015Q2

REPORT INFORMATION
  Report Type: Spontaneous
  Country: GB (occurrence: GB)
  Receive Date: 20120312
  Receipt Date: 20150608
  Transmission Date: 20150821
  Serious: Yes (Other)
  Sender: FDA-Public Use
  Company Number: PHFR2012GB001580

PATIENT
  Age: 45 Year
  Sex: Male

DRUGS (2)
  1. CLOZARIL [Suspect]
     Active Substance: CLOZAPINE
     Indication: SCHIZOAFFECTIVE DISORDER
     Dosage: 400 MG, QD
     Route: 048
     Dates: start: 20060410
  2. LAMOTRIGIN [Concomitant]
     Active Substance: LAMOTRIGINE
     Indication: SCHIZOAFFECTIVE DISORDER
     Dosage: 400 MG, QD
     Route: 048
     Dates: start: 201005

REACTIONS (4)
  - Neutrophil count increased [Unknown]
  - White blood cell count increased [Not Recovered/Not Resolved]
  - Lymphocyte count increased [Unknown]
  - Differential white blood cell count abnormal [Recovered/Resolved]

NARRATIVE: CASE EVENT DATE: 20120306
